FAERS Safety Report 7382588-4 (Version None)
Quarter: 2011Q1

REPORT INFORMATION
  Report Type: 
  Country: None (occurrence: None)
  Receive Date: 20110329
  Receipt Date: 20110316
  Transmission Date: 20110831
  Serious: Yes (Other)
  Sender: FDA-Public Use
  Company Number: US-BAYER-2011-004895

PATIENT
  Sex: Female

DRUGS (5)
  1. AVELOX [Suspect]
     Indication: SINUSITIS
     Dosage: 400 MG, UNK
     Route: 048
     Dates: start: 20110111
  2. AUGMENTIN [Concomitant]
     Indication: SINUSITIS
     Dosage: UNK
     Dates: start: 20110112
  3. UNKNOWN DRUG [Concomitant]
  4. ZITHROMAX [Concomitant]
     Indication: WHITE BLOOD CELL COUNT INCREASED
  5. SINGULAIR [Concomitant]

REACTIONS (7)
  - HYPOAESTHESIA ORAL [None]
  - HYPOTENSION [None]
  - FALL [None]
  - ANAPHYLACTIC REACTION [None]
  - CHOKING SENSATION [None]
  - OXYGEN SATURATION DECREASED [None]
  - FEELING HOT [None]
